FAERS Safety Report 14720421 (Version 7)
Quarter: 2019Q2

REPORT INFORMATION
  Report Type: Report from Study
  Country: JP (occurrence: JP)
  Receive Date: 20180405
  Receipt Date: 20190604
  Transmission Date: 20190711
  Serious: Yes (Death, Hospitalization, Other)
  Sender: FDA-Public Use
  Company Number: JP-009507513-1803JPN001322J

PATIENT
  Age: 74 Year
  Sex: Male
  Weight: 65 kg

DRUGS (4)
  1. SYMPROIC [Concomitant]
     Active Substance: NALDEMEDINE
     Indication: TRANSITIONAL CELL CARCINOMA
     Dosage: 1 DOSAGE FORM, QD
     Route: 048
     Dates: start: 20180305, end: 20180322
  2. NARURAPID [Concomitant]
     Active Substance: HYDROMORPHONE HYDROCHLORIDE
     Indication: TRANSITIONAL CELL CARCINOMA
     Dosage: 1 DOSAGE FORM, PRN
     Route: 048
     Dates: start: 20180305, end: 20180322
  3. KEYTRUDA [Suspect]
     Active Substance: PEMBROLIZUMAB
     Indication: TRANSITIONAL CELL CARCINOMA
     Dosage: 200 MG, UNK
     Route: 041
     Dates: start: 20180214, end: 20180307
  4. NARUSUS [Concomitant]
     Active Substance: HYDROMORPHONE HYDROCHLORIDE
     Indication: TRANSITIONAL CELL CARCINOMA
     Dosage: 2 DOSAGE FORM, 7TIMES/DAY
     Route: 048
     Dates: start: 20180305, end: 20180322

REACTIONS (2)
  - Interstitial lung disease [Not Recovered/Not Resolved]
  - Malignant neoplasm progression [Fatal]

NARRATIVE: CASE EVENT DATE: 20180305
